FAERS Safety Report 8026930-X (Version None)
Quarter: 2012Q1

REPORT INFORMATION
  Report Type: 
  Country: None (occurrence: None)
  Receive Date: 20120106
  Receipt Date: 20120102
  Transmission Date: 20120608
  Serious: Yes (Other)
  Sender: FDA-Public Use
  Company Number: US-JNJFOC-20120100411

PATIENT
  Sex: Female
  Weight: 54.43 kg

DRUGS (3)
  1. RECLAST [Concomitant]
     Indication: OSTEOARTHRITIS
     Route: 042
  2. METHOTREXATE [Concomitant]
     Indication: RHEUMATOID ARTHRITIS
     Route: 065
     Dates: start: 20110101
  3. REMICADE [Suspect]
     Indication: RHEUMATOID ARTHRITIS
     Route: 042
     Dates: start: 20000101

REACTIONS (10)
  - VISUAL FIELD DEFECT [None]
  - EYE DEGENERATIVE DISORDER [None]
  - EYE DISORDER [None]
  - RETINAL HAEMORRHAGE [None]
  - BLINDNESS [None]
  - BLOOD MAGNESIUM INCREASED [None]
  - BLOOD TEST ABNORMAL [None]
  - RETINAL EXUDATES [None]
  - ARTHRITIS [None]
  - FLUID RETENTION [None]
